FAERS Safety Report 13261018 (Version 1)
Quarter: 2017Q1

REPORT INFORMATION
  Report Type: Spontaneous
  Country: US (occurrence: US)
  Receive Date: 20170222
  Receipt Date: 20170222
  Transmission Date: 20170428
  Serious: No
  Sender: FDA-Public Use
  Company Number: US-TEVA-740562ACC

PATIENT
  Sex: Female

DRUGS (15)
  1. BIOTIN [Concomitant]
     Active Substance: BIOTIN
  2. DIAZEPAM. [Concomitant]
     Active Substance: DIAZEPAM
  3. MELATONIN [Concomitant]
     Active Substance: MELATONIN
  4. SUCRALFATE. [Concomitant]
     Active Substance: SUCRALFATE
  5. PANTOPRAZOLE [Concomitant]
     Active Substance: PANTOPRAZOLE SODIUM
  6. VITAMIN D [Concomitant]
     Active Substance: CHOLECALCIFEROL
  7. VESICARE [Concomitant]
     Active Substance: SOLIFENACIN SUCCINATE
  8. WARFARIN [Concomitant]
     Active Substance: WARFARIN
  9. MIRALAX [Concomitant]
     Active Substance: POLYETHYLENE GLYCOL 3350
  10. CARVEDILOL. [Concomitant]
     Active Substance: CARVEDILOL
  11. PROMETHEGAN [Concomitant]
     Active Substance: PROMETHAZINE HYDROCHLORIDE
  12. DICLOXACILLIN [Concomitant]
     Active Substance: DICLOXACILLIN
  13. MULTIVITAMIN [Concomitant]
     Active Substance: VITAMINS
  14. POTASSIUM CHLORIDE. [Concomitant]
     Active Substance: POTASSIUM CHLORIDE
  15. COPAXONE [Suspect]
     Active Substance: GLATIRAMER ACETATE
     Indication: MULTIPLE SCLEROSIS
     Route: 058
     Dates: start: 20150901

REACTIONS (1)
  - Chills [Unknown]
